FAERS Safety Report 6834618-3 (Version None)
Quarter: 2010Q3

REPORT INFORMATION
  Report Type: 
  Country: None (occurrence: None)
  Receive Date: 20100712
  Receipt Date: 20070413
  Transmission Date: 20110219
  Serious: No
  Sender: FDA-Public Use
  Company Number: US-PFIZER INC-2007030330

PATIENT
  Sex: Female
  Weight: 89.81 kg

DRUGS (7)
  1. CHANTIX [Suspect]
     Indication: SMOKING CESSATION THERAPY
     Dates: start: 20070409
  2. PREVACID [Concomitant]
  3. CELEXA [Concomitant]
  4. VALSARTAN [Concomitant]
     Indication: HYPERTENSION
  5. LIPITOR [Concomitant]
  6. ALLEGRA [Concomitant]
  7. QUESTRAN [Concomitant]
     Indication: DIARRHOEA

REACTIONS (2)
  - DYSGEUSIA [None]
  - ERUCTATION [None]
